FAERS Safety Report 12892100 (Version 2)
Quarter: 2016Q4

REPORT INFORMATION
  Report Type: Spontaneous
  Country: US (occurrence: US)
  Receive Date: 20161028
  Receipt Date: 20161107
  Transmission Date: 20170207
  Serious: No
  Sender: FDA-Public Use
  Company Number: US-LEO PHARMA-244500

PATIENT
  Age: 73 Year
  Sex: Female

DRUGS (1)
  1. PICATO [Suspect]
     Active Substance: INGENOL MEBUTATE
     Indication: ACTINIC KERATOSIS
     Route: 061
     Dates: start: 20160712, end: 20160713

REACTIONS (5)
  - Hypersensitivity [Recovered/Resolved]
  - Application site erythema [Recovered/Resolved]
  - Incorrect dose administered [Unknown]
  - Application site oedema [Recovered/Resolved]
  - Drug administered at inappropriate site [Unknown]
